FAERS Safety Report 12210585 (Version 3)
Quarter: 2016Q2

REPORT INFORMATION
  Report Type: Spontaneous
  Country: US (occurrence: US)
  Receive Date: 20160325
  Receipt Date: 20160411
  Transmission Date: 20160815
  Serious: Yes (Other)
  Sender: FDA-Public Use
  Company Number: US-GLAXOSMITHKLINE-US2016037754

PATIENT
  Age: 80 Year
  Sex: Female

DRUGS (2)
  1. DIGOXIN. [Concomitant]
     Active Substance: DIGOXIN
  2. ADVAIR DISKUS [Suspect]
     Active Substance: FLUTICASONE PROPIONATE\SALMETEROL XINAFOATE
     Indication: WHEEZING
     Dosage: 1 PUFF(S), BID
     Route: 055
     Dates: start: 20160305, end: 20160311

REACTIONS (14)
  - Nausea [Recovering/Resolving]
  - Chest pain [Recovering/Resolving]
  - Pleuritic pain [Unknown]
  - Asthenia [Unknown]
  - Adverse drug reaction [Unknown]
  - Back pain [Recovering/Resolving]
  - Abdominal discomfort [Unknown]
  - Drug dose omission [Recovered/Resolved]
  - Bronchitis [Unknown]
  - Dizziness [Unknown]
  - Dyspnoea [Unknown]
  - Mental impairment [Unknown]
  - Hospitalisation [Unknown]
  - Swelling face [Unknown]

NARRATIVE: CASE EVENT DATE: 20160305
